FAERS Safety Report 8351673-2 (Version None)
Quarter: 2012Q2

REPORT INFORMATION
  Report Type: 
  Country: None (occurrence: None)
  Receive Date: 20120511
  Receipt Date: 20120501
  Transmission Date: 20120825
  Serious: No
  Sender: FDA-Public Use
  Company Number: US-BIOGENIDEC-2012BI015501

PATIENT
  Age: 33 Year
  Sex: Female

DRUGS (4)
  1. BENADRYL [Concomitant]
     Indication: PREMEDICATION
     Route: 042
  2. TYSABRI [Suspect]
     Indication: MULTIPLE SCLEROSIS
     Route: 042
     Dates: start: 20110627
  3. PEPCID [Concomitant]
     Indication: PREMEDICATION
     Route: 042
  4. HYDROCORTISONE [Concomitant]
     Indication: PREMEDICATION
     Route: 042

REACTIONS (11)
  - CHILLS [None]
  - PARAESTHESIA [None]
  - INFUSION RELATED REACTION [None]
  - TREMOR [None]
  - HYPOAESTHESIA [None]
  - CHEST PAIN [None]
  - MUSCLE SPASMS [None]
  - FATIGUE [None]
  - HEADACHE [None]
  - CONCUSSION [None]
  - FLUSHING [None]
